FAERS Safety Report 23459715 (Version 1)
Quarter: 2024Q1

REPORT INFORMATION
  Report Type: Spontaneous
  Country: US (occurrence: None)
  Receive Date: 20240131
  Receipt Date: 20240131
  Transmission Date: 20240409
  Serious: No
  Sender: FDA-Public Use
  Company Number: 2024A022359

PATIENT
  Sex: Female

DRUGS (1)
  1. SYMBICORT [Suspect]
     Active Substance: BUDESONIDE\FORMOTEROL FUMARATE DIHYDRATE
     Dosage: 4.5 UG, UNKNOWN UNKNOWN
     Route: 055

REACTIONS (4)
  - Cough [Unknown]
  - Respiratory tract irritation [Unknown]
  - Throat irritation [Unknown]
  - Medication error [Unknown]

NARRATIVE: CASE EVENT DATE: 20240121
